FAERS Safety Report 6474396-3 (Version None)
Quarter: 2009Q4

REPORT INFORMATION
  Report Type: 
  Country: None (occurrence: None)
  Receive Date: 20091204
  Receipt Date: 20091126
  Transmission Date: 20100525
  Serious: Yes (Death, Hospitalization)
  Sender: FDA-Public Use
  Company Number: SE-ASTRAZENECA-2009SE28990

PATIENT
  Age: 85 Year
  Sex: Female

DRUGS (17)
  1. ATACAND [Suspect]
     Indication: ESSENTIAL HYPERTENSION
     Route: 048
     Dates: end: 20090929
  2. FURIX [Suspect]
     Indication: CARDIAC FAILURE
     Route: 048
  3. SPIRONOLAKTON NYCOMED [Suspect]
     Indication: CARDIAC FAILURE
     Route: 048
     Dates: end: 20090929
  4. DRUG NOT SHOWN [Suspect]
     Indication: BACK PAIN
     Route: 048
     Dates: start: 20090916, end: 20090927
  5. NOVOLOG [Concomitant]
     Dosage: 100 E/ML
     Route: 065
  6. PRIMPERAN TAB [Concomitant]
     Route: 065
  7. PAMOL [Concomitant]
     Route: 065
  8. NORSPAN [Concomitant]
     Route: 062
  9. INOLAXOL [Concomitant]
     Route: 065
  10. PREDNISOLONE [Concomitant]
     Route: 065
  11. NITROMEX [Concomitant]
     Route: 060
  12. MORFIN MEDA [Concomitant]
     Route: 065
  13. BETOLVEX [Concomitant]
     Route: 065
  14. DEXOFEN [Concomitant]
     Route: 065
  15. TROMBYL [Concomitant]
     Route: 065
  16. LEVOTHYROXINE SODIUM [Concomitant]
     Route: 065
  17. NOVOMIX 30 FLEXPEN [Concomitant]
     Dosage: 100 E/ML
     Route: 065

REACTIONS (2)
  - HAEMORRHAGE [None]
  - RENAL FAILURE ACUTE [None]
